FAERS Safety Report 12538077 (Version 1)
Quarter: 2016Q3

REPORT INFORMATION
  Report Type: Spontaneous
  Country: US (occurrence: US)
  Receive Date: 20160707
  Receipt Date: 20160707
  Transmission Date: 20161109
  Serious: Yes (Hospitalization, Disabling)
  Sender: FDA-Public Use
  Company Number: US-PFM-US-2016-2028

PATIENT
  Age: 58 Year
  Sex: Female

DRUGS (2)
  1. PROPRANOLOL INN [Suspect]
     Active Substance: PROPRANOLOL HYDROCHLORIDE
     Indication: CEREBRAL HAEMANGIOMA
     Dosage: 20 MG, TID (3/DAY)
     Route: 065
     Dates: start: 201304
  2. PROPRANOLOL INN [Suspect]
     Active Substance: PROPRANOLOL HYDROCHLORIDE
     Dosage: 20 MG, BID (2/DAY)
     Route: 065
     Dates: start: 2014, end: 20141001

REACTIONS (7)
  - Product use issue [Recovered/Resolved]
  - Dyspnoea [Recovering/Resolving]
  - Fall [Unknown]
  - Exercise tolerance decreased [Recovering/Resolving]
  - Drug administered to patient of inappropriate age [Recovered/Resolved]
  - Off label use [Recovered/Resolved]
  - Joint dislocation [Unknown]

NARRATIVE: CASE EVENT DATE: 201304
